FAERS Safety Report 13735967 (Version 2)
Quarter: 2017Q3

REPORT INFORMATION
  Report Type: Spontaneous
  Country: US (occurrence: US)
  Receive Date: 20170710
  Receipt Date: 20170731
  Transmission Date: 20171127
  Serious: Yes (Other)
  Sender: FDA-Public Use
  Company Number: US-ACCORD-053181

PATIENT
  Age: 43 Year
  Sex: Male

DRUGS (4)
  1. CAPECITABINE. [Suspect]
     Active Substance: CAPECITABINE
     Indication: PANCREATIC NEUROENDOCRINE TUMOUR
     Dosage: 750MG/M2 TWICE DAILY FOR 14 DAYS, DAYS 1 TO 14
     Route: 048
     Dates: end: 201601
  2. TEMOZOLOMIDE. [Suspect]
     Active Substance: TEMOZOLOMIDE
     Indication: PANCREATIC NEUROENDOCRINE TUMOUR
     Dosage: 200MG/M2 ONCE DAILY AT BEDTIME FOR 5 DAYS, DAYS 10-14, EVERY 28 DAYS
     Route: 048
     Dates: end: 201601
  3. INSULIN [Concomitant]
     Active Substance: INSULIN NOS
     Indication: TYPE 2 DIABETES MELLITUS
  4. OCTREOTIDE/OCTREOTIDE ACETATE [Concomitant]
     Indication: PANCREATIC NEUROENDOCRINE TUMOUR
     Route: 030
     Dates: start: 201412

REACTIONS (2)
  - Off label use [Unknown]
  - Cytopenia [Unknown]
